FAERS Safety Report 4527575-6 (Version None)
Quarter: 2004Q4

REPORT INFORMATION
  Report Type: 
  Country: None (occurrence: None)
  Receive Date: 20041124
  Receipt Date: 20040910
  Transmission Date: 20050328
  Serious: Yes (Hospitalization)
  Sender: FDA-Public Use
  Company Number: 238815

PATIENT
  Age: 73 Year
  Sex: Female
  Weight: 77.5 kg

DRUGS (7)
  1. NOVOLIN 70/30 [Suspect]
     Indication: INSULIN-REQUIRING TYPE II DIABETES MELLITUS
     Dosage: 40 IU, BID, SUBCUTANEOUS
     Route: 058
     Dates: start: 20040510, end: 20040511
  2. NOVOLOG MIX 70/30 [Suspect]
     Indication: INSULIN-REQUIRING TYPE II DIABETES MELLITUS
     Dosage: 40 IU, BID, SUBCUTANEOUS
     Route: 058
     Dates: start: 20040510
  3. ACTOS /USA/(PIOGLITAZONE HYDROCHLORIDE) [Concomitant]
  4. ALTACE (RAMIPRIL) [Concomitant]
  5. BRETHINE [Concomitant]
  6. FLOVENT [Concomitant]
  7. NITROGLYCERIN ^A.L.^ (GLYCERYL TRINITRATE) [Concomitant]

REACTIONS (2)
  - BLOOD GLUCOSE FLUCTUATION [None]
  - MEDICATION ERROR [None]
